FAERS Safety Report 11211260 (Version 1)
Quarter: 2015Q2

REPORT INFORMATION
  Report Type: Spontaneous
  Country: GB (occurrence: None)
  Receive Date: 20150619
  Receipt Date: 20150619
  Transmission Date: 20150821
  Serious: Yes (Life-Threatening, Hospitalization, Other)
  Sender: FDA-Public Use
  Company Number: PR-AE15-000470

PATIENT
  Age: 59 Year
  Sex: Female

DRUGS (6)
  1. ORLISTAT [Suspect]
     Active Substance: ORLISTAT
     Route: 048
  2. TAGAMET [Suspect]
     Active Substance: CIMETIDINE
     Route: 048
  3. METFORMIN [Suspect]
     Active Substance: METFORMIN HYDROCHLORIDE
     Route: 048
  4. AMILORIDE HYDROCHLORIDE + FUROSEMIDE (CO-AMILOFRUSE) [Concomitant]
  5. SODIUM BICARBONATE. [Concomitant]
     Active Substance: SODIUM BICARBONATE
  6. ACETYLSALICYLIC ACID (ASPIRIN) [Concomitant]

REACTIONS (16)
  - Vision blurred [None]
  - Lactic acidosis [None]
  - Vomiting [None]
  - Depressed level of consciousness [None]
  - Diarrhoea [None]
  - Drug interaction [None]
  - Asthenia [None]
  - Dizziness [None]
  - Abdominal pain [None]
  - Acute prerenal failure [None]
  - Circulatory collapse [None]
  - Dysarthria [None]
  - Confusional state [None]
  - Acute kidney injury [None]
  - Agitation [None]
  - Coma scale abnormal [None]
